FAERS Safety Report 18918619 (Version 1)
Quarter: 2021Q1

REPORT INFORMATION
  Report Type: Spontaneous
  Country: CA (occurrence: CA)
  Receive Date: 20210220
  Receipt Date: 20210220
  Transmission Date: 20210420
  Serious: Yes (Other)
  Sender: FDA-Public Use
  Company Number: CA-AUROBINDO-AUR-APL-2021-006954

PATIENT
  Age: 86 Year
  Sex: Female

DRUGS (2)
  1. TELMISARTAN TABLETS [Suspect]
     Active Substance: TELMISARTAN
     Indication: PRODUCT USED FOR UNKNOWN INDICATION
     Dosage: 40 MILLIGRAM, ONCE A DAY
     Route: 065
  2. TELMISARTAN TABLETS [Suspect]
     Active Substance: TELMISARTAN
     Dosage: 80 MILLIGRAM, ONCE A DAY
     Route: 065

REACTIONS (3)
  - Abdominal discomfort [Unknown]
  - Dizziness [Unknown]
  - Product substitution issue [Unknown]
